FAERS Safety Report 6691827-4 (Version None)
Quarter: 2010Q2

REPORT INFORMATION
  Report Type: 
  Country: None (occurrence: None)
  Receive Date: 20100422
  Receipt Date: 20100412
  Transmission Date: 20101027
  Serious: Yes (Life-Threatening, Hospitalization)
  Sender: FDA-Public Use
  Company Number: PHHY2010US24485

PATIENT
  Sex: Female

DRUGS (7)
  1. RECLAST [Suspect]
     Dosage: UNK
     Route: 042
     Dates: start: 20100222
  2. MULTI-VITAMINS [Concomitant]
  3. CALCIUM WITH VITAMIN D [Concomitant]
     Dosage: 15000 U, UNK
  4. THYROID TAB [Concomitant]
  5. LIPITOR [Concomitant]
  6. ATENOLOL [Concomitant]
  7. POTASSIUM [Concomitant]

REACTIONS (14)
  - AMNESIA [None]
  - APPARENT DEATH [None]
  - ARTHRALGIA [None]
  - BLOOD POTASSIUM DECREASED [None]
  - BLOOD SODIUM DECREASED [None]
  - DELIRIUM [None]
  - DYSSTASIA [None]
  - ELECTROLYTE DEPLETION [None]
  - MALAISE [None]
  - MUSCULOSKELETAL STIFFNESS [None]
  - PAIN [None]
  - PYREXIA [None]
  - RETCHING [None]
  - VOMITING [None]
